FAERS Safety Report 8956758 (Version 1)
Quarter: 2012Q4

REPORT INFORMATION
  Report Type: 
  Country: JP (occurrence: JP)
  Receive Date: 20121211
  Receipt Date: 20121211
  Transmission Date: 20130627
  Serious: Yes (Other)
  Sender: FDA-Public Use
  Company Number: JP-ASTRAZENECA-2012SE90808

PATIENT
  Age: 74 Year
  Sex: Female

DRUGS (6)
  1. ROPIVACAINE [Suspect]
     Indication: GENERAL ANAESTHESIA
     Dosage: 4 MG/HR
  2. FENTANYL [Suspect]
     Indication: GENERAL ANAESTHESIA
     Dosage: 8 UG/HR
  3. REMIFENTANYL [Suspect]
     Indication: MAINTENANCE OF ANAESTHESIA
  4. SEVOFLURANE [Suspect]
     Indication: MAINTENANCE OF ANAESTHESIA
  5. SURITAL [Suspect]
     Indication: GENERAL ANAESTHESIA
  6. ROCURONIUM [Suspect]
     Indication: MAINTENANCE OF ANAESTHESIA

REACTIONS (2)
  - Atrioventricular block second degree [Unknown]
  - Syncope [Recovered/Resolved]
